FAERS Safety Report 8475394-0 (Version None)
Quarter: 2012Q2

REPORT INFORMATION
  Report Type: 
  Country: None (occurrence: None)
  Receive Date: 20120628
  Receipt Date: 20120622
  Transmission Date: 20120825
  Serious: Yes (Hospitalization)
  Sender: FDA-Public Use
  Company Number: US-CELGENEUS-163-21880-12020161

PATIENT
  Sex: Female

DRUGS (19)
  1. REVLIMID [Suspect]
     Indication: MULTIPLE MYELOMA
     Dosage: 25 MILLIGRAM
     Route: 048
     Dates: start: 20111213, end: 20120106
  2. CLEMASTINE FURARATE [Concomitant]
     Dosage: 1 TABLET
     Route: 048
  3. VELCADE [Concomitant]
     Indication: MULTIPLE MYELOMA
     Route: 065
  4. DILAUDID [Concomitant]
     Dosage: 2 MILLIGRAM
     Route: 048
  5. ASPIRIN [Concomitant]
     Dosage: 81 MILLIGRAM
     Route: 048
  6. NORVASC [Concomitant]
     Dosage: 5 MILLIGRAM
     Route: 048
  7. OMEPRAZOLE [Concomitant]
     Dosage: 20 MILLIGRAM
     Route: 048
  8. ANTIBIOTICS [Concomitant]
     Indication: PREOPERATIVE CARE
     Route: 065
     Dates: start: 20120101, end: 20120101
  9. FLEXERIL [Concomitant]
     Dosage: 10 MILLIGRAM
     Route: 048
  10. COZAAR [Concomitant]
     Dosage: 25 MILLIGRAM
     Route: 048
  11. ONDANSETRON (ZOFRAN) [Concomitant]
     Dosage: 4 MILLIGRAM
     Route: 048
  12. NIASPAN [Concomitant]
     Dosage: 2 TABLET
     Route: 048
  13. DEXAMETHASONE [Concomitant]
     Indication: MULTIPLE MYELOMA
     Dosage: 4 MILLIGRAM
     Route: 048
  14. TRAMADOL HYDROCHLORIDE AND ACETAMINOPHEN [Concomitant]
     Dosage: 2 TABLET
     Route: 048
  15. WHOLE BLOOD [Concomitant]
     Dosage: ONE UNIT
     Route: 041
     Dates: start: 20120101, end: 20120101
  16. REVLIMID [Suspect]
     Dosage: 25 MILLIGRAM
     Route: 048
     Dates: start: 20120128
  17. SYNTHROID [Concomitant]
     Dosage: 75 MICROGRAM
     Route: 048
  18. MULTI-VITAMINS [Concomitant]
     Route: 065
  19. VAGIFEM [Concomitant]
     Dosage: 10 MICROGRAM
     Route: 067

REACTIONS (2)
  - BLOOD PRESSURE INADEQUATELY CONTROLLED [None]
  - BILIARY COLIC [None]
